FAERS Safety Report 6399434-8 (Version None)
Quarter: 2009Q4

REPORT INFORMATION
  Report Type: 
  Country: None (occurrence: None)
  Receive Date: 20091014
  Receipt Date: 20091001
  Transmission Date: 20100525
  Serious: Yes (Hospitalization, Other)
  Sender: FDA-Public Use
  Company Number: PHHY2009JP42821

PATIENT
  Age: 70 Year
  Sex: Female

DRUGS (4)
  1. FAMVIR [Suspect]
     Indication: HERPES ZOSTER
     Dosage: 1500 MG/DAY
     Route: 048
     Dates: start: 20090913, end: 20090919
  2. REBAMIPIDE [Concomitant]
     Dosage: UNK
     Dates: start: 20090913
  3. LOXOPROFEN SODIUM [Concomitant]
     Dosage: UNK
     Dates: start: 20090913
  4. MECOBALAMIN [Concomitant]
     Dosage: UNK
     Dates: start: 20090913

REACTIONS (9)
  - HAEMATOCRIT DECREASED [None]
  - HAEMOGLOBIN DECREASED [None]
  - LOW DENSITY LIPOPROTEIN INCREASED [None]
  - MALAISE [None]
  - PANCYTOPENIA [None]
  - PLATELET COUNT DECREASED [None]
  - RED BLOOD CELL COUNT DECREASED [None]
  - THIRST [None]
  - WHITE BLOOD CELL COUNT DECREASED [None]
